FAERS Safety Report 9193228 (Version 2)
Quarter: 2013Q2

REPORT INFORMATION
  Report Type: Spontaneous
  Country: US (occurrence: US)
  Receive Date: 20130327
  Receipt Date: 20130422
  Transmission Date: 20140414
  Serious: Yes (Death)
  Sender: FDA-Public Use
  Company Number: US-GILEAD-2013-0072507

PATIENT
  Sex: Female

DRUGS (3)
  1. LETAIRIS [Suspect]
     Indication: PULMONARY ARTERIAL HYPERTENSION
     Dosage: 10 MG, QD
     Route: 048
     Dates: start: 20120720, end: 201303
  2. LETAIRIS [Suspect]
     Indication: SCLERODERMA
  3. SILDENAFIL [Concomitant]
     Indication: SCLERODERMA
     Dates: start: 20121003, end: 201303

REACTIONS (1)
  - Death [Fatal]
